FAERS Safety Report 21744040 (Version 1)
Quarter: 2022Q4

REPORT INFORMATION
  Report Type: Spontaneous
  Country: CN (occurrence: CN)
  Receive Date: 20221217
  Receipt Date: 20221217
  Transmission Date: 20230112
  Serious: Yes (Hospitalization, Other)
  Sender: FDA-Public Use
  Company Number: CN-009507513-2212CHN004924

PATIENT
  Age: 77 Year
  Sex: Male
  Weight: 58 kg

DRUGS (2)
  1. CILASTATIN SODIUM\IMIPENEM [Suspect]
     Active Substance: CILASTATIN SODIUM\IMIPENEM
     Indication: Urinary tract infection
     Dosage: 1GRAM, EVERY 8 HOURS
     Route: 041
     Dates: start: 20221127, end: 20221204
  2. SODIUM CHLORIDE [Concomitant]
     Active Substance: SODIUM CHLORIDE
     Dosage: 100 ML

REACTIONS (7)
  - Mental disorder [Recovering/Resolving]
  - Intracranial infection [Unknown]
  - Ischaemic cerebral infarction [Unknown]
  - Lacunar infarction [Unknown]
  - Neurodegenerative disorder [Unknown]
  - Cerebral cyst [Unknown]
  - Dysphoria [Unknown]

NARRATIVE: CASE EVENT DATE: 20220101
